FAERS Safety Report 14840840 (Version 1)
Quarter: 2018Q2

REPORT INFORMATION
  Report Type: Spontaneous
  Country: US (occurrence: US)
  Receive Date: 20180503
  Receipt Date: 20180503
  Transmission Date: 20180711
  Serious: No
  Sender: FDA-Public Use
  Company Number: US-PFIZER INC-2018179263

PATIENT
  Age: 67 Year
  Sex: Female

DRUGS (6)
  1. SOLGANAL [Suspect]
     Active Substance: AUROTHIOGLUCOSE
     Dosage: UNK
  2. CELEBREX [Suspect]
     Active Substance: CELECOXIB
     Dosage: UNK
  3. REMICADE [Suspect]
     Active Substance: INFLIXIMAB
     Dosage: UNK
  4. HUMIRA [Suspect]
     Active Substance: ADALIMUMAB
     Dosage: UNK
  5. ARAVA [Suspect]
     Active Substance: LEFLUNOMIDE
     Dosage: UNK
  6. METHOTREXATE SODIUM. [Suspect]
     Active Substance: METHOTREXATE SODIUM
     Dosage: UNK

REACTIONS (1)
  - Drug hypersensitivity [Unknown]
